FAERS Safety Report 14647351 (Version 3)
Quarter: 2018Q3

REPORT INFORMATION
  Report Type: Spontaneous
  Country: US (occurrence: US)
  Receive Date: 20180316
  Receipt Date: 20180905
  Transmission Date: 20181010
  Serious: Yes (Hospitalization)
  Sender: FDA-Public Use
  Company Number: US-PFIZER INC-2018088812

PATIENT
  Age: 77 Year
  Sex: Female
  Weight: 78.5 kg

DRUGS (6)
  1. LYRICA [Suspect]
     Active Substance: PREGABALIN
     Indication: HERPES ZOSTER
     Dosage: 2 DF, UNK
  2. ZYRTEC [Concomitant]
     Active Substance: CETIRIZINE HYDROCHLORIDE
     Dosage: UNK
  3. LYRICA [Suspect]
     Active Substance: PREGABALIN
     Indication: NERVE INJURY
     Dosage: 3 DF, DAILY
  4. LYRICA [Suspect]
     Active Substance: PREGABALIN
     Indication: FIBROMYALGIA
     Dosage: 75 MG, 1X/DAY (ONCE IN THE MORNING)
     Route: 048
     Dates: start: 2018, end: 20180304
  5. LYRICA [Suspect]
     Active Substance: PREGABALIN
     Indication: NEUROPATHY PERIPHERAL
     Dosage: 75 MG, (ONE CAPSULE IN THE MORNING AND ONE CAPSULE 12 HOURS LATER IN THE EVENING)
     Route: 048
     Dates: start: 20180305
  6. LYRICA [Suspect]
     Active Substance: PREGABALIN
     Dosage: 75 MG, 2X/DAY

REACTIONS (22)
  - Labyrinthitis [Recovered/Resolved]
  - Gait disturbance [Unknown]
  - Abdominal discomfort [Not Recovered/Not Resolved]
  - Dementia Alzheimer^s type [Unknown]
  - Dehydration [Unknown]
  - Diarrhoea [Unknown]
  - Confusional state [Unknown]
  - Urinary tract infection [Unknown]
  - Malaise [Unknown]
  - Intentional product misuse [Unknown]
  - Headache [Recovered/Resolved]
  - Asthenia [Not Recovered/Not Resolved]
  - Otitis media [Unknown]
  - Cerebrovascular accident [Unknown]
  - Vomiting [Recovered/Resolved]
  - Sinusitis [Unknown]
  - Drug ineffective [Recovering/Resolving]
  - Ear pain [Recovered/Resolved]
  - Hypotension [Unknown]
  - Herpes zoster [Unknown]
  - Disease recurrence [Unknown]
  - Memory impairment [Unknown]

NARRATIVE: CASE EVENT DATE: 2018
